FAERS Safety Report 8844456 (Version 2)
Quarter: 2013Q2

REPORT INFORMATION
  Report Type: Spontaneous
  Country: US (occurrence: None)
  Receive Date: 20120426
  Receipt Date: 20120703
  Transmission Date: 20140414
  Serious: No
  Sender: FDA-Public Use
  Company Number: PHEH2012US004107

PATIENT
  Age: 39 Year
  Sex: Female
  Weight: 90.7 kg

DRUGS (1)
  1. GILENYA [Suspect]
     Indication: MULTIPLE SCLEROSIS
     Route: 048
     Dates: start: 20120216

REACTIONS (5)
  - Flushing [None]
  - Feeling hot [None]
  - Hot flush [None]
  - Pain [None]
  - Headache [None]
